FAERS Safety Report 12439706 (Version 2)
Quarter: 2016Q3

REPORT INFORMATION
  Report Type: Spontaneous
  Country: US (occurrence: US)
  Receive Date: 20160606
  Receipt Date: 20160812
  Transmission Date: 20161109
  Serious: Yes (Other)
  Sender: FDA-Public Use
  Company Number: US-SUNOVION-2016SUN001385

PATIENT
  Sex: Female
  Weight: 68.93 kg

DRUGS (5)
  1. LATUDA [Suspect]
     Active Substance: LURASIDONE HYDROCHLORIDE
     Indication: PSYCHOTIC DISORDER
     Dosage: 100 MG, UNK
     Route: 048
  2. MICATIN [Concomitant]
     Active Substance: MICONAZOLE NITRATE
     Indication: PSORIASIS
     Dosage: UNK
     Route: 061
  3. LATUDA [Suspect]
     Active Substance: LURASIDONE HYDROCHLORIDE
     Indication: SCHIZOAFFECTIVE DISORDER
     Dosage: 60 MG, QD
     Route: 048
     Dates: end: 20160720
  4. DEPAKOTE [Suspect]
     Active Substance: DIVALPROEX SODIUM
     Indication: ANXIETY
     Dosage: UNK UNK, Q4H
     Route: 048
     Dates: end: 20160720
  5. HYDROCORTISONE. [Concomitant]
     Active Substance: HYDROCORTISONE
     Indication: PSORIASIS
     Dosage: UNK
     Route: 061

REACTIONS (4)
  - Dissociation [Not Recovered/Not Resolved]
  - Reduced facial expression [Recovered/Resolved]
  - Suicidal ideation [Not Recovered/Not Resolved]
  - Hostility [Recovered/Resolved]
